FAERS Safety Report 6071969-7 (Version None)
Quarter: 2009Q1

REPORT INFORMATION
  Report Type: 
  Country: None (occurrence: None)
  Receive Date: 20090205
  Receipt Date: 20090205
  Transmission Date: 20090719
  Serious: No
  Sender: FDA-Public Use
  Company Number: None

PATIENT
  Age: 35 Year
  Sex: Female
  Weight: 79.3795 kg

DRUGS (2)
  1. OCELLA 3MG/0.03MG BARR [Suspect]
     Indication: MIGRAINE
     Dosage: ONE DAILY PO
     Route: 048
     Dates: start: 20081225, end: 20090203
  2. OCELLA 3MG/0.03MG BARR [Suspect]
     Indication: PREMENSTRUAL SYNDROME
     Dosage: ONE DAILY PO
     Route: 048
     Dates: start: 20081225, end: 20090203

REACTIONS (10)
  - ACTIVITIES OF DAILY LIVING IMPAIRED [None]
  - ANGER [None]
  - ANXIETY [None]
  - APATHY [None]
  - CONDITION AGGRAVATED [None]
  - CRYING [None]
  - DEPRESSION [None]
  - IRRITABILITY [None]
  - MIGRAINE [None]
  - MYALGIA [None]
